FAERS Safety Report 19856331 (Version 1)
Quarter: 2021Q3

REPORT INFORMATION
  Report Type: Spontaneous
  Country: PL (occurrence: PL)
  Receive Date: 20210920
  Receipt Date: 20210920
  Transmission Date: 20211014
  Serious: Yes (Hospitalization, Other)
  Sender: FDA-Public Use
  Company Number: PL-MYLANLABS-2021M1063793

PATIENT
  Sex: Female

DRUGS (7)
  1. TELMISARTAN. [Concomitant]
     Active Substance: TELMISARTAN
     Indication: HYPERTENSION
     Dosage: 80 MILLIGRAM, QD
     Route: 065
  2. THIAMAZOLE [Concomitant]
     Active Substance: METHIMAZOLE
     Indication: HYPERTHYROIDISM
     Dosage: 2.5 MILLIGRAM, QD
     Route: 065
  3. FUROSEMIDE. [Concomitant]
     Active Substance: FUROSEMIDE
     Indication: HYPERTENSION
     Dosage: 40 MILLIGRAM (INTERMITTENTLY, 1?3 TIMES PER WEEK )
     Route: 065
  4. INDAPAMIDE. [Suspect]
     Active Substance: INDAPAMIDE
     Indication: HYPERTENSION
     Dosage: 1.5 MILLIGRAM, QD
     Route: 065
  5. AMLODIPINE;BISOPROLOL [Concomitant]
     Active Substance: AMLODIPINE\BISOPROLOL
     Indication: HYPERTENSION
     Dosage: UNK UNK, QD
     Route: 065
  6. ACETYLSALICYLIC ACID [Concomitant]
     Active Substance: ASPIRIN
     Indication: ATRIAL FIBRILLATION
     Dosage: 75 MILLIGRAM, QD
     Route: 065
  7. TELMISARTAN. [Concomitant]
     Active Substance: TELMISARTAN
     Dosage: 20 MILLIGRAM, QD
     Route: 065

REACTIONS (4)
  - Insomnia [Recovered/Resolved]
  - Quality of life decreased [Recovered/Resolved]
  - Hyponatraemia [Recovered/Resolved]
  - Loss of personal independence in daily activities [Recovered/Resolved]
